FAERS Safety Report 20997494 (Version 2)
Quarter: 2022Q3

REPORT INFORMATION
  Report Type: Report from Study
  Country: FR (occurrence: FR)
  Receive Date: 20220623
  Receipt Date: 20220802
  Transmission Date: 20221027
  Serious: Yes (Hospitalization, Other)
  Sender: FDA-Public Use
  Company Number: FR-SUN PHARMACEUTICAL INDUSTRIES LTD-2022R1-341691

PATIENT
  Age: 62 Year
  Sex: Male
  Weight: 112 kg

DRUGS (9)
  1. AMLODIPINE [Interacting]
     Active Substance: AMLODIPINE BESYLATE
     Indication: Product used for unknown indication
     Dosage: UNK
     Route: 048
  2. BISOPROLOL [Interacting]
     Active Substance: BISOPROLOL
     Indication: Product used for unknown indication
     Dosage: UNK
     Route: 048
  3. ATORVASTATIN [Interacting]
     Active Substance: ATORVASTATIN
     Indication: Product used for unknown indication
     Dosage: UNK
     Route: 048
  4. ACETAMINOPHEN [Interacting]
     Active Substance: ACETAMINOPHEN
     Indication: Product used for unknown indication
     Dosage: UNK
     Route: 048
  5. HYDROCHLOROTHIAZIDE [Interacting]
     Active Substance: HYDROCHLOROTHIAZIDE
     Indication: Product used for unknown indication
     Dosage: UNK
     Route: 048
  6. CLOMIPRAMINE [Interacting]
     Active Substance: CLOMIPRAMINE
     Indication: Product used for unknown indication
     Dosage: UNK
     Route: 048
  7. POTASSIUM [Interacting]
     Active Substance: POTASSIUM
     Indication: Product used for unknown indication
     Dosage: UNK
     Route: 048
  8. APIXABAN [Interacting]
     Active Substance: APIXABAN
     Indication: Atrial fibrillation
     Dosage: 230 MILLIGRAM
     Route: 048
  9. APIXABAN [Interacting]
     Active Substance: APIXABAN
     Indication: Anticoagulant therapy

REACTIONS (8)
  - Toxicity to various agents [Unknown]
  - Cardiovascular disorder [Unknown]
  - Drug interaction [Unknown]
  - Intentional overdose [Unknown]
  - Poisoning deliberate [Unknown]
  - Poisoning deliberate [Unknown]
  - Shock [Unknown]
  - Suicide attempt [Unknown]
